FAERS Safety Report 9111659 (Version 1)
Quarter: 2013Q1

REPORT INFORMATION
  Report Type: Spontaneous
  Country: US (occurrence: US)
  Receive Date: 20130219
  Receipt Date: 20130219
  Transmission Date: 20140127
  Serious: No
  Sender: FDA-Public Use
  Company Number: US-BRISTOL-MYERS SQUIBB COMPANY-16572877

PATIENT
  Age: 58 Year
  Sex: Female
  Weight: 66.21 kg

DRUGS (10)
  1. ORENCIA [Suspect]
  2. SYNTHROID [Concomitant]
  3. ZOCOR [Concomitant]
  4. CLARITHROMYCIN [Concomitant]
  5. MINOCYCLINE [Concomitant]
  6. CYMBALTA [Concomitant]
  7. FOLIC ACID [Concomitant]
  8. INDERAL [Concomitant]
  9. PREVACID [Concomitant]
  10. TYLENOL ARTHRITIS [Concomitant]

REACTIONS (2)
  - Contusion [Not Recovered/Not Resolved]
  - Back pain [Not Recovered/Not Resolved]
